FAERS Safety Report 6977107-8 (Version None)
Quarter: 2010Q3

REPORT INFORMATION
  Report Type: 
  Country: None (occurrence: None)
  Receive Date: 20100910
  Receipt Date: 20100806
  Transmission Date: 20110219
  Serious: Yes (Hospitalization, Other)
  Sender: FDA-Public Use
  Company Number: PHEH2009US01977

PATIENT
  Sex: Female
  Weight: 81.633 kg

DRUGS (18)
  1. AREDIA [Suspect]
     Indication: METASTASES TO BONE
     Dosage: 90 MG, UNK
     Dates: start: 20051001
  2. FOSAMAX [Concomitant]
  3. HERCEPTIN [Concomitant]
  4. TAXOL [Concomitant]
  5. ARANESP [Concomitant]
  6. NAVELBINE [Concomitant]
  7. DECADRON                                /NET/ [Concomitant]
  8. SYNTHROID [Concomitant]
  9. ZOLOFT [Concomitant]
  10. PREDNISONE [Concomitant]
  11. OXYCODONE [Concomitant]
  12. MORPHINE [Concomitant]
  13. MS CONTIN [Concomitant]
  14. RELAFEN [Concomitant]
  15. DILANTIN                                /AUS/ [Concomitant]
  16. AMPICILLIN SODIUM [Suspect]
  17. STEROIDS NOS [Concomitant]
     Indication: BREAST CANCER
  18. ANTIBIOTICS [Concomitant]

REACTIONS (33)
  - ANAEMIA [None]
  - BACK PAIN [None]
  - CACHEXIA [None]
  - CARDIAC DISORDER [None]
  - CLONUS [None]
  - COMPRESSION FRACTURE [None]
  - CONVULSION [None]
  - DECREASED APPETITE [None]
  - DEEP VEIN THROMBOSIS [None]
  - DIZZINESS [None]
  - DYSPNOEA [None]
  - FIBROMYALGIA [None]
  - JAW DISORDER [None]
  - LOOSE TOOTH [None]
  - LYMPHADENOPATHY [None]
  - MASTITIS [None]
  - METASTASES TO CENTRAL NERVOUS SYSTEM [None]
  - MUSCULAR WEAKNESS [None]
  - MUSCULOSKELETAL STIFFNESS [None]
  - OEDEMA PERIPHERAL [None]
  - OSTEOARTHRITIS [None]
  - OSTEOMYELITIS [None]
  - OSTEONECROSIS OF JAW [None]
  - OSTEOPENIA [None]
  - PAIN IN JAW [None]
  - PNEUMOTHORAX [None]
  - POLYMYALGIA RHEUMATICA [None]
  - RADIATION INJURY [None]
  - ROTATOR CUFF SYNDROME [None]
  - SCOLIOSIS [None]
  - SPINAL OSTEOARTHRITIS [None]
  - TOOTH LOSS [None]
  - WEIGHT DECREASED [None]
